FAERS Safety Report 5896978-X (Version None)
Quarter: 2008Q3

REPORT INFORMATION
  Report Type: 
  Country: None (occurrence: None)
  Receive Date: 20080924
  Receipt Date: 20080515
  Transmission Date: 20090109
  Serious: Yes (Hospitalization)
  Sender: FDA-Public Use
  Company Number: US-ASTRAZENECA-2008UW07631

PATIENT
  Age: 4295 Day
  Sex: Male
  Weight: 41.7 kg

DRUGS (3)
  1. SEROQUEL XR [Suspect]
     Indication: AFFECTIVE DISORDER
     Dosage: APPROXIMATELY 15 PILLS
     Route: 048
     Dates: start: 20071003
  2. ANAFRANIL [Concomitant]
     Indication: OBSESSIVE-COMPULSIVE PERSONALITY DISORDER
     Route: 048
     Dates: start: 20070806
  3. DEPAKOTE ER [Concomitant]
     Indication: AFFECTIVE DISORDER
     Route: 048
     Dates: start: 20080317

REACTIONS (1)
  - OVERDOSE [None]
